FAERS Safety Report 24592081 (Version 2)
Quarter: 2024Q4

REPORT INFORMATION
  Report Type: Spontaneous
  Country: TW (occurrence: TW)
  Receive Date: 20241108
  Receipt Date: 20241113
  Transmission Date: 20250115
  Serious: Yes (Life-Threatening, Other)
  Sender: MERCK
  Company Number: TW-009507513-2411TWN001961

PATIENT
  Age: 77 Year
  Sex: Male
  Weight: 59.2 kg

DRUGS (1)
  1. SUGAMMADEX SODIUM [Suspect]
     Active Substance: SUGAMMADEX SODIUM
     Dosage: 108.8 MILLIGRAM, ONCE; START DATE: 25-OCT-2024 12:15; STOP DATE: 25-OCT-2024 12:15
     Route: 042

REACTIONS (1)
  - Cardiac arrest [Recovered/Resolved]

NARRATIVE: CASE EVENT DATE: 20241025
